FAERS Safety Report 8087952-6 (Version None)
Quarter: 2012Q1

REPORT INFORMATION
  Report Type: 
  Country: None (occurrence: None)
  Receive Date: 20120130
  Receipt Date: 20120119
  Transmission Date: 20120608
  Serious: Yes (Hospitalization)
  Sender: FDA-Public Use
  Company Number: US-ASTRAZENECA-2012SE04041

PATIENT
  Age: 37 Year
  Sex: Female
  Weight: 158.8 kg

DRUGS (3)
  1. SEROQUEL XR [Suspect]
     Indication: BIPOLAR DISORDER
     Route: 048
     Dates: start: 20070101
  2. SEROQUEL XR [Suspect]
     Indication: ANXIETY
     Route: 048
     Dates: start: 20070101
  3. XANAX [Concomitant]

REACTIONS (6)
  - INTENTIONAL SELF-INJURY [None]
  - FEELING ABNORMAL [None]
  - OFF LABEL USE [None]
  - TACHYPHRENIA [None]
  - AGGRESSION [None]
  - DRUG INEFFECTIVE [None]
